FAERS Safety Report 20962962 (Version 1)
Quarter: 2022Q2

REPORT INFORMATION
  Report Type: Spontaneous
  Country: US (occurrence: US)
  Receive Date: 20220615
  Receipt Date: 20220615
  Transmission Date: 20220721
  Serious: No
  Sender: FDA-Public Use
  Company Number: PR-BIOVITRUM-2022PR01996

PATIENT
  Age: 0 Year
  Sex: Male

DRUGS (1)
  1. SYNAGIS [Suspect]
     Active Substance: PALIVIZUMAB
     Indication: Premature baby
     Dosage: 28.20
     Route: 030
     Dates: start: 20210114

REACTIONS (3)
  - SARS-CoV-2 test positive [Unknown]
  - Eye discharge [Unknown]
  - Rash [Unknown]

NARRATIVE: CASE EVENT DATE: 20220125
